FAERS Safety Report 9302532 (Version 1)
Quarter: 2013Q2

REPORT INFORMATION
  Report Type: Spontaneous
  Country: TR (occurrence: None)
  Receive Date: 20130517
  Receipt Date: 20130517
  Transmission Date: 20140414
  Serious: Yes (Hospitalization, Other)
  Sender: FDA-Public Use
  Company Number: 2013P1005705

PATIENT
  Age: 22 Year
  Sex: Female

DRUGS (1)
  1. PROPYLTHIOURACIL [Suspect]
     Indication: BASEDOW^S DISEASE
     Route: 048

REACTIONS (8)
  - Periorbital oedema [None]
  - Pruritus [None]
  - Rash erythematous [None]
  - Angioedema [None]
  - Pruritus [None]
  - Hepatotoxicity [None]
  - Pancytopenia [None]
  - Agranulocytosis [None]
